FAERS Safety Report 5802955-7 (Version None)
Quarter: 2008Q3

REPORT INFORMATION
  Report Type: 
  Country: None (occurrence: None)
  Receive Date: 20080708
  Receipt Date: 20080627
  Transmission Date: 20090109
  Serious: Yes (Death)
  Sender: FDA-Public Use
  Company Number: CN-ROCHE-573240

PATIENT
  Age: 14 Year
  Sex: Male

DRUGS (2)
  1. CEFTRIAXONE [Suspect]
     Indication: UPPER RESPIRATORY TRACT INFECTION
     Route: 042
  2. GLUCOSE [Concomitant]
     Indication: UPPER RESPIRATORY TRACT INFECTION
     Dosage: DOSAGE REGIMEN: 5% GLUCOSE 200ML.

REACTIONS (1)
  - ANAPHYLACTIC SHOCK [None]
